FAERS Safety Report 9509828 (Version 1)
Quarter: 2013Q3

REPORT INFORMATION
  Report Type: Spontaneous
  Country: US (occurrence: US)
  Receive Date: 20130909
  Receipt Date: 20130909
  Transmission Date: 20140515
  Serious: Yes (Other)
  Sender: FDA-Public Use
  Company Number: US-BRISTOL-MYERS SQUIBB COMPANY-17119108

PATIENT
  Age: 13 Year
  Sex: Male
  Weight: 67.12 kg

DRUGS (4)
  1. ABILIFY [Suspect]
     Indication: CONDUCT DISORDER
     Dates: start: 20120918
  2. ABILIFY [Suspect]
     Indication: BIPOLAR DISORDER
     Dates: start: 20120918
  3. ABILIFY [Suspect]
     Indication: AUTISM SPECTRUM DISORDER
     Dates: start: 20120918
  4. ABILIFY [Suspect]
     Indication: ATTENTION DEFICIT/HYPERACTIVITY DISORDER
     Dates: start: 20120918

REACTIONS (1)
  - Weight increased [Unknown]
